FAERS Safety Report 14691165 (Version 3)
Quarter: 2018Q3

REPORT INFORMATION
  Report Type: Report from Study
  Country: TW (occurrence: TW)
  Receive Date: 20180328
  Receipt Date: 20180709
  Transmission Date: 20181010
  Serious: Yes (Other)
  Sender: FDA-Public Use
  Company Number: PHHY2018TW035763

PATIENT
  Age: 75 Year
  Sex: Male

DRUGS (32)
  1. TASIGNA [Suspect]
     Active Substance: NILOTINIB
     Dosage: 450 MG, UNK
     Route: 048
     Dates: start: 20140618, end: 20140715
  2. FEBURIC [Concomitant]
     Active Substance: FEBUXOSTAT
     Indication: GOUTY ARTHRITIS
     Dosage: 80 MG, UNK
     Route: 048
     Dates: start: 20170609, end: 20170616
  3. HERBESSER [Concomitant]
     Active Substance: DILTIAZEM HYDROCHLORIDE
     Indication: CHRONIC OBSTRUCTIVE PULMONARY DISEASE
     Dosage: 30 MG, UNK
     Route: 048
     Dates: start: 20150729
  4. SHINCORT [Concomitant]
     Indication: GOUTY ARTHRITIS
     Dosage: 2 ML, UNK
     Route: 013
     Dates: start: 20150325, end: 20150325
  5. SOD BICARBONATE [Concomitant]
     Indication: PROPHYLAXIS
     Dosage: 300 MG, UNK
     Route: 048
     Dates: start: 20141015, end: 20150324
  6. TASIGNA [Suspect]
     Active Substance: NILOTINIB
     Dosage: 600 MG, UNK
     Route: 048
     Dates: start: 20150918
  7. SCANOL [Concomitant]
     Indication: PROPHYLAXIS
     Dosage: 500 MG, UNK
     Route: 048
     Dates: start: 20150128, end: 20150204
  8. ATORVASTATIN [Concomitant]
     Active Substance: ATORVASTATIN
     Indication: HYPERLIPIDAEMIA
     Dosage: 10 MG, UNK
     Route: 048
     Dates: start: 20150225
  9. CHLORPHENAMINE [Concomitant]
     Active Substance: CHLORPHENIRAMINE MALEATE
     Indication: PROPHYLAXIS
     Dosage: 5 MG, UNK
     Route: 042
     Dates: start: 20150805, end: 20150805
  10. KLEAN?PREP [Concomitant]
     Active Substance: ELECTROLYTES NOS\POLYETHYLENE GLYCOL 3350
     Indication: COLONOSCOPY
     Dosage: 2 OT, UNK
     Route: 048
     Dates: start: 20151105, end: 20151105
  11. SENOKOT [Concomitant]
     Active Substance: SENNOSIDES
     Indication: CHRONIC OBSTRUCTIVE PULMONARY DISEASE
     Dosage: 15 MG, UNK
     Route: 048
     Dates: start: 20170609
  12. ANXIEDIN [Concomitant]
     Indication: PROPHYLAXIS
     Dosage: 0.5 MG, UNK
     Route: 048
     Dates: start: 20150805, end: 20150806
  13. SOD BICARBONATE [Concomitant]
     Dosage: 100 ML, UNK
     Route: 042
     Dates: start: 20150805, end: 20150805
  14. DIOVAN [Concomitant]
     Active Substance: VALSARTAN
     Indication: CHRONIC OBSTRUCTIVE PULMONARY DISEASE
     Dosage: 40 MG, UNK
     Route: 048
     Dates: start: 20150612, end: 20150713
  15. FUBIFEN PAP [Concomitant]
     Indication: PRODUCT USED FOR UNKNOWN INDICATION
     Dosage: 40 MG/10, UNK
     Route: 065
     Dates: start: 20160727, end: 20161126
  16. TEIRIA [Concomitant]
     Indication: CHRONIC OBSTRUCTIVE PULMONARY DISEASE
  17. TASIGNA [Suspect]
     Active Substance: NILOTINIB
     Indication: CHRONIC MYELOID LEUKAEMIA
     Dosage: 600 MG, UNK
     Route: 048
     Dates: start: 20140118, end: 20140211
  18. TASIGNA [Suspect]
     Active Substance: NILOTINIB
     Dosage: 300 MG, UNK
     Route: 048
     Dates: start: 20140212, end: 20140617
  19. TASIGNA [Suspect]
     Active Substance: NILOTINIB
     Dosage: 450 MG, UNK
     Route: 048
     Dates: start: 20140813, end: 20150917
  20. DULCOLAX NOS [Concomitant]
     Active Substance: BISACODYL OR DOCUSATE SODIUM
     Indication: COLONOSCOPY
     Dosage: 15 MG, UNK
     Route: 048
     Dates: start: 20151105, end: 20151105
  21. SHINCORT [Concomitant]
     Dosage: 2 ML, UNK
     Route: 065
     Dates: start: 20150826, end: 20150826
  22. BROEN?C [Concomitant]
     Indication: PROPHYLAXIS
     Dosage: 1 DF, UNK
     Route: 048
     Dates: start: 20150128, end: 20150204
  23. LORAPSEUDO [Concomitant]
     Indication: PROPHYLAXIS
     Dosage: 1 DF, UNK
     Route: 048
     Dates: start: 20150128, end: 20150204
  24. ALLOPURINOL. [Concomitant]
     Active Substance: ALLOPURINOL
     Indication: GOUTY ARTHRITIS
     Dosage: 100 MG, UNK
     Route: 048
     Dates: start: 20141112
  25. CELEBREX [Concomitant]
     Active Substance: CELECOXIB
     Indication: CHRONIC OBSTRUCTIVE PULMONARY DISEASE
     Dosage: 200 MG, UNK
     Route: 048
     Dates: start: 20170609
  26. TAMSULOSIN [Concomitant]
     Active Substance: TAMSULOSIN
     Indication: BENIGN PROSTATIC HYPERPLASIA
     Dosage: 0.4 MG, UNK
     Route: 048
     Dates: start: 20141015
  27. TASIGNA [Suspect]
     Active Substance: NILOTINIB
     Dosage: 600 MG, UNK
     Route: 048
     Dates: start: 20140716, end: 20140812
  28. COLCHICINE. [Concomitant]
     Active Substance: COLCHICINE
     Indication: GOUTY ARTHRITIS
     Dosage: 0.5 MG, UNK
     Route: 048
     Dates: start: 20141015
  29. DIFFLAM FORTE [Concomitant]
     Indication: PROPHYLAXIS
     Dosage: UNK
     Route: 061
     Dates: start: 20150128, end: 20150131
  30. FLUR DI FEN [Concomitant]
     Indication: CHRONIC OBSTRUCTIVE PULMONARY DISEASE
     Dosage: 3.33 MG/G, UNK
     Route: 065
     Dates: start: 20170120
  31. TEIRIA [Concomitant]
     Indication: PROPHYLAXIS
     Dosage: 10 %, TID
     Route: 061
     Dates: start: 20150512, end: 20161214
  32. BOKEY [Concomitant]
     Indication: CHRONIC OBSTRUCTIVE PULMONARY DISEASE
     Dosage: 100 MG, UNK
     Route: 048
     Dates: start: 20150729

REACTIONS (2)
  - Cataract [Recovered/Resolved]
  - Macular degeneration [Recovering/Resolving]

NARRATIVE: CASE EVENT DATE: 20160318
